FAERS Safety Report 6792054-2 (Version None)
Quarter: 2010Q2

REPORT INFORMATION
  Report Type: 
  Country: None (occurrence: None)
  Receive Date: 20100624
  Receipt Date: 20090625
  Transmission Date: 20101027
  Serious: Yes (Hospitalization, Other)
  Sender: FDA-Public Use
  Company Number: US-PFIZER INC-2008059764

PATIENT
  Sex: Female
  Weight: 43 kg

DRUGS (4)
  1. PROVERA [Suspect]
     Indication: HORMONE REPLACEMENT THERAPY
     Dosage: 10 MG, UNK
     Route: 048
     Dates: start: 19840101, end: 19960101
  2. PREMARIN [Suspect]
     Indication: HORMONE REPLACEMENT THERAPY
     Dosage: 0.3 MG, UNK
     Dates: start: 19840101, end: 19960101
  3. PREMARIN [Suspect]
     Dosage: 0.625 MG, UNK
     Dates: start: 19840101, end: 19960101
  4. PREMARIN [Suspect]
     Dosage: 1.25 MG, UNK
     Dates: start: 19840101, end: 19960101

REACTIONS (1)
  - BREAST CANCER FEMALE [None]
